FAERS Safety Report 17701125 (Version 2)
Quarter: 2020Q2

REPORT INFORMATION
  Report Type: Spontaneous
  Country: US (occurrence: US)
  Receive Date: 20200424
  Receipt Date: 20200617
  Transmission Date: 20200714
  Serious: Yes (Other)
  Sender: FDA-Public Use
  Company Number: US-AMGEN-USASP2020065952

PATIENT
  Age: 80 Year
  Sex: Male
  Weight: 68.03 kg

DRUGS (8)
  1. AMIODARONE [Concomitant]
     Active Substance: AMIODARONE
     Dosage: 200 MILLIGRAM, BID
     Route: 048
  2. LOSARTAN. [Concomitant]
     Active Substance: LOSARTAN
     Dosage: 25 MILLIGRAM, QD
     Route: 048
  3. LASIX [Concomitant]
     Active Substance: FUROSEMIDE
     Dosage: 20 MILLIGRAM, QD
     Route: 048
  4. REPATHA [Suspect]
     Active Substance: EVOLOCUMAB
     Indication: BLOOD CHOLESTEROL INCREASED
     Dosage: 140 MILLIGRAM, Q2WK
     Route: 058
     Dates: start: 202003
  5. ASPIRIN [ACETYLSALICYLIC ACID] [Concomitant]
     Active Substance: ASPIRIN
     Dosage: 325 MILLIGRAM, EVERY 4 HOURS
     Route: 048
  6. METOPROLOL. [Concomitant]
     Active Substance: METOPROLOL
     Dosage: 50 MILLIGRAM, QD
     Route: 048
  7. POTASSIUM [Concomitant]
     Active Substance: POTASSIUM
     Dosage: 10 MILLIEQUIVALENT, QD
     Route: 048
  8. AMLODIPINE [Concomitant]
     Active Substance: AMLODIPINE BESYLATE
     Dosage: 5 MILLIGRAM
     Route: 048

REACTIONS (2)
  - Wrong technique in device usage process [Unknown]
  - Coronary artery bypass [Unknown]

NARRATIVE: CASE EVENT DATE: 20200314
